FAERS Safety Report 7194840-6 (Version None)
Quarter: 2010Q4

REPORT INFORMATION
  Report Type: 
  Country: None (occurrence: None)
  Receive Date: 20101223
  Receipt Date: 20100919
  Transmission Date: 20110411
  Serious: No
  Sender: FDA-Public Use
  Company Number: US-AMGEN-TCS439521

PATIENT

DRUGS (2)
  1. ENBREL [Suspect]
     Indication: RHEUMATOID ARTHRITIS
     Dosage: 50 MG, QWK
     Route: 058
     Dates: start: 20070504, end: 20100901
  2. CEPHALEXIN MONOHYDRATE [Concomitant]

REACTIONS (7)
  - ABDOMINAL PAIN UPPER [None]
  - ARTHRALGIA [None]
  - CRYING [None]
  - DIARRHOEA [None]
  - MALAISE [None]
  - PAIN IN EXTREMITY [None]
  - TOOTH ABSCESS [None]
